FAERS Safety Report 7954435-0 (Version None)
Quarter: 2011Q4

REPORT INFORMATION
  Report Type: 
  Country: None (occurrence: None)
  Receive Date: 20111202
  Receipt Date: 20111108
  Transmission Date: 20120403
  Serious: Yes (Hospitalization)
  Sender: FDA-Public Use
  Company Number: JP-GLAXOSMITHKLINE-B0761572A

PATIENT
  Sex: Male

DRUGS (5)
  1. CIPROFLOXACIN HCL [Concomitant]
     Indication: INFECTION PROPHYLAXIS
     Dosage: 400MG PER DAY
     Route: 048
     Dates: start: 20100330, end: 20100401
  2. ARIXTRA [Suspect]
     Indication: THROMBOSIS PROPHYLAXIS
     Dosage: 15MG PER DAY
     Route: 058
     Dates: start: 20100326, end: 20100331
  3. CEFAZOLIN [Concomitant]
     Indication: INFECTION PROPHYLAXIS
     Dosage: 2G PER DAY
     Dates: start: 20100326, end: 20100329
  4. HEPARIN [Suspect]
     Indication: THROMBOSIS PROPHYLAXIS
     Dosage: 1.51IU3 PER DAY
     Route: 058
     Dates: start: 20100326, end: 20100328
  5. ROPIVACAINE HYDROCHLORIDE [Concomitant]
     Indication: PAIN
     Dosage: 200MG PER DAY
     Route: 008
     Dates: start: 20100326, end: 20100328

REACTIONS (10)
  - BLOOD UREA INCREASED [None]
  - POST PROCEDURAL HAEMORRHAGE [None]
  - WHITE BLOOD CELL COUNT DECREASED [None]
  - HAEMATOCRIT DECREASED [None]
  - FLUID RETENTION [None]
  - ASPARTATE AMINOTRANSFERASE INCREASED [None]
  - HAEMOGLOBIN DECREASED [None]
  - ALANINE AMINOTRANSFERASE INCREASED [None]
  - RED BLOOD CELL COUNT DECREASED [None]
  - PLATELET COUNT INCREASED [None]
